FAERS Safety Report 6419903-1 (Version None)
Quarter: 2009Q4

REPORT INFORMATION
  Report Type: 
  Country: None (occurrence: None)
  Receive Date: 20091029
  Receipt Date: 20091019
  Transmission Date: 20100525
  Serious: Yes (Other)
  Sender: FDA-Public Use
  Company Number: US-ELI_LILLY_AND_COMPANY-US200909005669

PATIENT
  Sex: Female

DRUGS (15)
  1. FORTEO [Suspect]
     Indication: OSTEOPOROSIS
     Dates: start: 20090601
  2. EVISTA [Concomitant]
  3. NEXIUM [Concomitant]
  4. NORCO [Concomitant]
  5. LORAZEPAM [Concomitant]
  6. AMBIEN [Concomitant]
  7. PROZAC [Concomitant]
  8. DETROL LA [Concomitant]
  9. ADVAIR DISKUS 100/50 [Concomitant]
  10. ALBUTEROL [Concomitant]
  11. CALCIUM [Concomitant]
  12. LISINOPRIL [Concomitant]
  13. MULTI-VITAMIN [Concomitant]
  14. HYDROCHLOROTHIAZIDE [Concomitant]
  15. VITAMIN D [Concomitant]

REACTIONS (2)
  - FALL [None]
  - PELVIC FRACTURE [None]
